FAERS Safety Report 4647170-8 (Version None)
Quarter: 2005Q2

REPORT INFORMATION
  Report Type: 
  Country: None (occurrence: None)
  Receive Date: 20050425
  Receipt Date: 20050412
  Transmission Date: 20051028
  Serious: Yes (Hospitalization)
  Sender: FDA-Public Use
  Company Number: 213686

PATIENT
  Age: 57 Year
  Sex: Female
  Weight: 83 kg

DRUGS (4)
  1. AVASTIN [Suspect]
     Indication: PANCREATIC CARCINOMA
     Dosage: 335 MG, Q2W, INTRAVENOUS
     Route: 042
     Dates: start: 20041209
  2. OXALIPLATIN (OXALIPLATIN) [Concomitant]
  3. FLUOROURACIL [Concomitant]
  4. LEUCOVORIN CALCIUM [Concomitant]

REACTIONS (1)
  - ABDOMINAL STRANGULATED HERNIA [None]
